FAERS Safety Report 10299508 (Version 1)
Quarter: 2014Q3

REPORT INFORMATION
  Report Type: Spontaneous
  Country: JP (occurrence: JP)
  Receive Date: 20140711
  Receipt Date: 20140711
  Transmission Date: 20150326
  Serious: Yes (Hospitalization)
  Sender: FDA-Public Use
  Company Number: JP-ABBVIE-14P-087-1257181-00

PATIENT
  Age: 60 Year
  Sex: Male

DRUGS (6)
  1. VALPROIC ACID. [Suspect]
     Active Substance: VALPROIC ACID
     Indication: LENNOX-GASTAUT SYNDROME
  2. VALPROIC ACID. [Suspect]
     Active Substance: VALPROIC ACID
  3. VALPROIC ACID. [Suspect]
     Active Substance: VALPROIC ACID
  4. VALPROIC ACID. [Suspect]
     Active Substance: VALPROIC ACID
  5. VALPROIC ACID. [Suspect]
     Active Substance: VALPROIC ACID
  6. VALPROIC ACID. [Suspect]
     Active Substance: VALPROIC ACID

REACTIONS (3)
  - White blood cell count decreased [Recovered/Resolved]
  - Neutrophil Pelger-Huet anomaly present [Recovered/Resolved]
  - Platelet count decreased [Recovered/Resolved]
